FAERS Safety Report 13316150 (Version 1)
Quarter: 2017Q1

REPORT INFORMATION
  Report Type: Spontaneous
  Country: FR (occurrence: FR)
  Receive Date: 20170310
  Receipt Date: 20170310
  Transmission Date: 20170428
  Serious: Yes (Hospitalization, Other)
  Sender: FDA-Public Use
  Company Number: FR-BRISTOL-MYERS SQUIBB COMPANY-BMS-2017-017561

PATIENT
  Age: 75 Year
  Sex: Female

DRUGS (3)
  1. COUMADINE [Suspect]
     Active Substance: WARFARIN SODIUM
     Indication: ARRHYTHMIA
     Route: 065
  2. METFORMIN HYDROCHLORIDE. [Suspect]
     Active Substance: METFORMIN HYDROCHLORIDE
     Indication: PRODUCT USED FOR UNKNOWN INDICATION
     Route: 065
  3. COUMADINE [Suspect]
     Active Substance: WARFARIN SODIUM
     Indication: ATRIAL FIBRILLATION
     Dosage: 1 DF, QD
     Route: 048
     Dates: start: 2016, end: 201701

REACTIONS (6)
  - General physical condition abnormal [Unknown]
  - Hypoglycaemia [Unknown]
  - Melaena [Unknown]
  - Anaemia [Recovering/Resolving]
  - Malaise [Unknown]
  - International normalised ratio increased [Recovering/Resolving]

NARRATIVE: CASE EVENT DATE: 20161228
